FAERS Safety Report 5662149-5 (Version None)
Quarter: 2008Q1

REPORT INFORMATION
  Report Type: 
  Country: None (occurrence: None)
  Receive Date: 20080312
  Receipt Date: 20080310
  Transmission Date: 20080703
  Serious: Yes (Other)
  Sender: FDA-Public Use
  Company Number: US-BOEHRINGER INGELHEIM GMBH, GERMANY-2008-DE-01504GD

PATIENT
  Age: 78 Year
  Sex: Female

DRUGS (4)
  1. MORPHINE [Suspect]
     Indication: PROCEDURAL PAIN
     Dosage: 1 MG AVAILABLE EVERY 30 MINUTES
     Route: 042
  2. LORAZEPAM [Suspect]
     Indication: SEDATIVE THERAPY
     Route: 042
  3. BELLADONNA [Suspect]
     Indication: BLADDER SPASM
  4. OPIUM [Suspect]
     Indication: BLADDER SPASM
     Route: 054

REACTIONS (2)
  - DELIRIUM [None]
  - SOMNOLENCE [None]
